FAERS Safety Report 7992955-3 (Version None)
Quarter: 2011Q4

REPORT INFORMATION
  Report Type: 
  Country: None (occurrence: None)
  Receive Date: 20111219
  Receipt Date: 20110324
  Transmission Date: 20120403
  Serious: No
  Sender: FDA-Public Use
  Company Number: US-ASTRAZENECA-2011SE16819

PATIENT
  Age: 63 Year
  Sex: Male

DRUGS (4)
  1. CRESTOR [Suspect]
     Indication: HYPERCHOLESTEROLAEMIA
     Route: 048
     Dates: start: 20090101, end: 20110314
  2. RAMIPRIL [Concomitant]
  3. LEVAZA [Concomitant]
  4. FLOMAX [Concomitant]

REACTIONS (1)
  - THROMBOCYTOPENIA [None]
